FAERS Safety Report 18910630 (Version 2)
Quarter: 2021Q1

REPORT INFORMATION
  Report Type: Spontaneous
  Country: JP (occurrence: JP)
  Receive Date: 20210218
  Receipt Date: 20210303
  Transmission Date: 20210420
  Serious: Yes (Hospitalization)
  Sender: FDA-Public Use
  Company Number: JP-ASTRAZENECA-2021A051400

PATIENT
  Age: 62 Year
  Sex: Male
  Weight: 59 kg

DRUGS (15)
  1. AMBROXOL HYDROCHLORIDE [Concomitant]
     Active Substance: AMBROXOL HYDROCHLORIDE
  2. FORXIGA [Suspect]
     Active Substance: DAPAGLIFLOZIN
     Indication: CARDIAC FAILURE CHRONIC
     Route: 048
     Dates: start: 20210121, end: 20210201
  3. TOLVAPTAN [Concomitant]
     Active Substance: TOLVAPTAN
  4. WARFARIN POTASSIUM [Concomitant]
     Active Substance: WARFARIN POTASSIUM
  5. NEXIUM [Concomitant]
     Active Substance: ESOMEPRAZOLE MAGNESIUM
     Route: 048
  6. CARVEDILOL. [Concomitant]
     Active Substance: CARVEDILOL
  7. L?CARBOCISTEINE [Concomitant]
     Active Substance: CARBOCYSTEINE
  8. GARENOXACIN MESILATE HYDRATE [Concomitant]
     Dates: start: 20210125, end: 20210129
  9. FORXIGA [Suspect]
     Active Substance: DAPAGLIFLOZIN
     Indication: CARDIAC FAILURE CHRONIC
     Route: 048
  10. AZOSEMIDE [Concomitant]
     Active Substance: AZOSEMIDE
  11. ROSUVASTATIN. [Concomitant]
     Active Substance: ROSUVASTATIN
  12. AMIODARONE HYDROCHLORIDE. [Concomitant]
     Active Substance: AMIODARONE HYDROCHLORIDE
  13. HALFDIGOXIN [Concomitant]
     Active Substance: DIGOXIN
  14. SPIRONOLACTONE. [Concomitant]
     Active Substance: SPIRONOLACTONE
  15. SACUBITRIL VALSARTAN SODIUM HYDRATE [Concomitant]
     Active Substance: SACUBITRIL\VALSARTAN
     Dates: start: 20210108

REACTIONS (1)
  - Euglycaemic diabetic ketoacidosis [Recovering/Resolving]

NARRATIVE: CASE EVENT DATE: 20210125
